FAERS Safety Report 22791402 (Version 4)
Quarter: 2025Q1

REPORT INFORMATION
  Report Type: Spontaneous
  Country: US (occurrence: US)
  Receive Date: 20230807
  Receipt Date: 20250326
  Transmission Date: 20250409
  Serious: Yes (Death, Other)
  Sender: SANOFI AVENTIS
  Company Number: US-SA-SAC20230804000435

PATIENT
  Age: 77 Year
  Sex: Female
  Weight: 104.55 kg

DRUGS (17)
  1. DUPIXENT [Suspect]
     Active Substance: DUPILUMAB
     Indication: Dermatitis atopic
     Route: 058
     Dates: start: 20230309, end: 20230309
  2. DUPIXENT [Suspect]
     Active Substance: DUPILUMAB
     Dosage: 300 MG, QOW
     Route: 058
  3. SYNTHROID [Concomitant]
     Active Substance: LEVOTHYROXINE SODIUM
  4. ASPIRIN [Concomitant]
     Active Substance: ASPIRIN
  5. HYDROXYZINE [Concomitant]
     Active Substance: HYDROXYZINE HYDROCHLORIDE
  6. IRON [Concomitant]
     Active Substance: IRON
  7. SPIRONOLACTONE [Concomitant]
     Active Substance: SPIRONOLACTONE
  8. POTASSIUM CHLORIDE [Concomitant]
     Active Substance: POTASSIUM CHLORIDE
  9. CARVEDILOL [Concomitant]
     Active Substance: CARVEDILOL
  10. LEVOTHYROXINE [Concomitant]
     Active Substance: LEVOTHYROXINE
  11. MACROBID [Concomitant]
     Active Substance: NITROFURANTOIN\NITROFURANTOIN MONOHYDRATE
  12. AMLODIPINE [Concomitant]
     Active Substance: AMLODIPINE BESYLATE
  13. TRIAMCINOLONE [Concomitant]
     Active Substance: TRIAMCINOLONE
  14. PROAIR HFA [Concomitant]
     Active Substance: ALBUTEROL SULFATE
  15. FUROSEMIDE [Concomitant]
     Active Substance: FUROSEMIDE
  16. TRAMADOL [Concomitant]
     Active Substance: TRAMADOL
  17. ATORVASTATIN [Concomitant]
     Active Substance: ATORVASTATIN

REACTIONS (2)
  - Death [Fatal]
  - Fluid retention [Unknown]

NARRATIVE: CASE EVENT DATE: 20250202
